FAERS Safety Report 6618256-3 (Version None)
Quarter: 2010Q1

REPORT INFORMATION
  Report Type: 
  Country: None (occurrence: None)
  Receive Date: 20100308
  Receipt Date: 20100225
  Transmission Date: 20100710
  Serious: Yes (Other)
  Sender: FDA-Public Use
  Company Number: US-JNJFOC-20100301742

PATIENT
  Age: 52 Year
  Sex: Female
  Weight: 136.08 kg

DRUGS (8)
  1. EXTRA STRENGTH TYLENOL [Suspect]
     Route: 048
  2. EXTRA STRENGTH TYLENOL [Suspect]
     Indication: PAIN
     Dosage: TIMES 1 1/2 WEEKS
     Route: 048
  3. LISINOPRIL [Concomitant]
     Indication: CARDIAC DISORDER
  4. LISINOPRIL [Concomitant]
     Indication: HYPERTENSION
  5. TOPROL-XL [Concomitant]
     Indication: CARDIAC DISORDER
  6. TOPROL-XL [Concomitant]
     Indication: HYPERTENSION
  7. POTASSIUM CITRATE [Concomitant]
     Indication: CARDIAC DISORDER
  8. LASIX [Concomitant]
     Indication: CARDIAC DISORDER

REACTIONS (4)
  - DYSPNOEA [None]
  - OESOPHAGEAL DISORDER [None]
  - PRODUCT QUALITY ISSUE [None]
  - THROAT IRRITATION [None]
